FAERS Safety Report 12689831 (Version 2)
Quarter: 2016Q3

REPORT INFORMATION
  Report Type: Spontaneous
  Country: MX (occurrence: MX)
  Receive Date: 20160826
  Receipt Date: 20160909
  Transmission Date: 20161109
  Serious: Yes (Hospitalization)
  Sender: FDA-Public Use
  Company Number: MX-IPSEN BIOPHARMACEUTICALS, INC.-2016-06584

PATIENT
  Age: 9 Year
  Sex: Female
  Weight: 20.4 kg

DRUGS (3)
  1. DYSPORT [Suspect]
     Active Substance: ABOBOTULINUMTOXINA
     Indication: SALIVARY HYPERSECRETION
     Dosage: 150 UNITS
     Route: 065
     Dates: start: 20160728, end: 20160728
  2. DYSPORT [Suspect]
     Active Substance: ABOBOTULINUMTOXINA
     Indication: PRODUCT USE ISSUE
     Dosage: 100 UNITS
     Route: 065
     Dates: start: 20131220, end: 20131220
  3. PENICILLIN [Concomitant]
     Active Substance: PENICILLIN

REACTIONS (2)
  - Dehydration [Recovering/Resolving]
  - Dysphagia [Recovering/Resolving]

NARRATIVE: CASE EVENT DATE: 201607
